FAERS Safety Report 10470529 (Version 3)
Quarter: 2015Q3

REPORT INFORMATION
  Report Type: Spontaneous
  Country: US (occurrence: US)
  Receive Date: 20140923
  Receipt Date: 20150910
  Transmission Date: 20151125
  Serious: Yes (Death, Hospitalization, Other)
  Sender: FDA-Public Use
  Company Number: US-MERCK-1409USA010699

PATIENT
  Sex: Male
  Weight: 64.5 kg

DRUGS (1)
  1. JANUVIA [Suspect]
     Active Substance: SITAGLIPTIN PHOSPHATE
     Indication: TYPE 2 DIABETES MELLITUS
     Dosage: UNK
     Route: 048
     Dates: start: 20061001, end: 20121015

REACTIONS (38)
  - Stent placement [Unknown]
  - Cholelithiasis [Unknown]
  - Anal fissure excision [Unknown]
  - Type 2 diabetes mellitus [Fatal]
  - Metastases to gallbladder [Unknown]
  - Radiotherapy to pancreas [Unknown]
  - Metastases to abdominal cavity [Unknown]
  - Hypertension [Unknown]
  - Pancreatic carcinoma metastatic [Fatal]
  - Metastases to retroperitoneum [Unknown]
  - Metastases to lung [Unknown]
  - Bile duct stent insertion [Unknown]
  - Edentulous [Unknown]
  - Metastases to liver [Unknown]
  - Metastases to spine [Unknown]
  - Pulmonary mass [Unknown]
  - Staphylococcal infection [Unknown]
  - Metastases to bone [Unknown]
  - Dehydration [Unknown]
  - Constipation [Unknown]
  - Unevaluable event [Unknown]
  - Spinal cord compression [Unknown]
  - Lymphadenopathy mediastinal [Unknown]
  - Metastasis [Unknown]
  - Failure to thrive [Unknown]
  - Tumour compression [Unknown]
  - Blood potassium decreased [Unknown]
  - Herpes zoster [Unknown]
  - Meningitis viral [Unknown]
  - Osteoarthritis [Unknown]
  - Diarrhoea [Unknown]
  - Death [Fatal]
  - Metastases to the mediastinum [Unknown]
  - Gastric stent insertion [Unknown]
  - Stent placement [Unknown]
  - Gastrointestinal obstruction [Unknown]
  - Stent placement [Unknown]
  - Neuropathy peripheral [Unknown]

NARRATIVE: CASE EVENT DATE: 2010
